FAERS Safety Report 24212275 (Version 1)
Quarter: 2024Q3

REPORT INFORMATION
  Report Type: Spontaneous
  Country: US (occurrence: US)
  Receive Date: 20240815
  Receipt Date: 20240815
  Transmission Date: 20241017
  Serious: Yes (Hospitalization, Other)
  Sender: ZYDUS PHARM
  Company Number: US-CADILA HEALTHCARE LIMITED-US-ZYDUS-110896

PATIENT

DRUGS (2)
  1. CARVEDILOL [Suspect]
     Active Substance: CARVEDILOL
     Indication: Product used for unknown indication
     Dosage: UNK
     Route: 065
  2. WARFARIN [Suspect]
     Active Substance: WARFARIN
     Indication: Product used for unknown indication
     Dosage: UNK
     Route: 065

REACTIONS (14)
  - Abdominal distension [Unknown]
  - Shock haemorrhagic [Unknown]
  - Disseminated intravascular coagulation [Unknown]
  - Coagulopathy [Unknown]
  - Pulseless electrical activity [Unknown]
  - Hallucinations, mixed [Unknown]
  - Acute kidney injury [Unknown]
  - Haemorrhage [Unknown]
  - Metabolic disorder [Unknown]
  - Cardiac arrest [Unknown]
  - Cardiac dysfunction [Unknown]
  - Cardiogenic shock [Unknown]
  - Toxicity to various agents [Unknown]
  - Overdose [Unknown]
